FAERS Safety Report 4512179-1 (Version None)
Quarter: 2004Q4

REPORT INFORMATION
  Report Type: 
  Country: None (occurrence: None)
  Receive Date: 20041123
  Receipt Date: 20041108
  Transmission Date: 20050328
  Serious: No
  Sender: FDA-Public Use
  Company Number: A01200405626

PATIENT
  Age: 70 Year
  Sex: Male

DRUGS (1)
  1. DANAZOL [Suspect]
     Indication: APLASTIC ANAEMIA
     Dosage: 600 MG QD ORAL
     Route: 048
     Dates: start: 20030929, end: 20040227

REACTIONS (1)
  - HEPATITIS [None]
